FAERS Safety Report 21298521 (Version 1)
Quarter: 2022Q3

REPORT INFORMATION
  Report Type: Spontaneous
  Country: None (occurrence: US)
  Receive Date: 20220906
  Receipt Date: 20220906
  Transmission Date: 20221027
  Serious: No
  Sender: FDA-Public Use
  Company Number: US-Xttrium Laboratories, Inc-2132580

PATIENT
  Sex: Female

DRUGS (1)
  1. SCRUB CARE EXIDINE -4 CHG [Suspect]
     Active Substance: CHLORHEXIDINE GLUCONATE
     Indication: Oropharyngeal pain
     Route: 048
     Dates: start: 20220428

REACTIONS (3)
  - Headache [Unknown]
  - Malaise [Unknown]
  - Accidental exposure to product [Unknown]

NARRATIVE: CASE EVENT DATE: 20220428
